FAERS Safety Report 9598377 (Version 1)
Quarter: 2013Q4

REPORT INFORMATION
  Report Type: Spontaneous
  Country: US (occurrence: US)
  Receive Date: 20131004
  Receipt Date: 20131004
  Transmission Date: 20140711
  Serious: No
  Sender: FDA-Public Use
  Company Number: US-AMGEN-USASP2013023338

PATIENT
  Age: 71 Year
  Sex: Male

DRUGS (14)
  1. ENBREL [Suspect]
     Indication: PRODUCT USED FOR UNKNOWN INDICATION
     Dosage: 50 MG, QWK
     Route: 058
  2. CILOSTAZOL [Concomitant]
     Dosage: 50 MG, UNK
  3. ZYRTEC [Concomitant]
     Dosage: 10 MG, UNK
  4. ALDARA [Concomitant]
     Dosage: 5 %, UNK
  5. LEFLUNOMIDE [Concomitant]
     Dosage: 10 MG, UNK
  6. BENAZEPRIL [Concomitant]
     Dosage: 10 MG, UNK
  7. OMEPRAZOLE [Concomitant]
     Dosage: 20 MG, UNK
  8. SIMVASTATIN [Concomitant]
     Dosage: 10 MG, UNK
  9. METOPROLOL [Concomitant]
     Dosage: 200 MG, UNK
  10. HYDROCODONE/APAP [Concomitant]
     Dosage: 10-500 MG
  11. FISH OIL [Concomitant]
     Dosage: UNK
  12. CALCIUM D                          /01483701/ [Concomitant]
     Dosage: UNK
  13. VITAMIN C                          /00008001/ [Concomitant]
     Dosage: 100 MG, UNK
  14. ASPIRIN LOW [Concomitant]
     Dosage: 81 MG, UNK

REACTIONS (1)
  - Sinusitis [Unknown]
